FAERS Safety Report 4909363-1 (Version None)
Quarter: 2006Q1

REPORT INFORMATION
  Report Type: 
  Country: None (occurrence: None)
  Receive Date: 20060213
  Receipt Date: 20060206
  Transmission Date: 20060701
  Serious: Yes (Hospitalization)
  Sender: FDA-Public Use
  Company Number: SE-GLAXOSMITHKLINE-B0409624A

PATIENT
  Age: 89 Year
  Sex: Female

DRUGS (11)
  1. REQUIP [Suspect]
     Indication: PARKINSONISM
     Route: 065
  2. MADOPARK [Concomitant]
     Route: 065
  3. OMEPRAZOLE [Concomitant]
     Dosage: 20MG UNKNOWN
     Route: 065
  4. ACETAMINOPHEN [Concomitant]
     Dosage: 500MG UNKNOWN
     Route: 065
  5. LASIX [Concomitant]
     Dosage: 30MG UNKNOWN
     Route: 065
  6. BETOLVEX [Concomitant]
     Dosage: 1MG UNKNOWN
     Route: 065
  7. DUPHALAC [Concomitant]
     Dosage: 670MGML UNKNOWN
     Route: 048
  8. FLUNITRAZEPAM [Concomitant]
     Dosage: .5MG UNKNOWN
     Route: 065
  9. TROMBYL [Concomitant]
     Dosage: 75MG UNKNOWN
     Route: 065
  10. TIPAROL [Concomitant]
     Dosage: 50MG UNKNOWN
     Route: 065
  11. EVISTA [Concomitant]
     Dosage: 60MG UNKNOWN
     Route: 065

REACTIONS (3)
  - ANXIETY [None]
  - FEAR [None]
  - PALPITATIONS [None]
